FAERS Safety Report 4665653-1 (Version None)
Quarter: 2005Q2

REPORT INFORMATION
  Report Type: 
  Country: None (occurrence: None)
  Receive Date: 20050517
  Receipt Date: 20050503
  Transmission Date: 20051028
  Serious: Yes (Other)
  Sender: FDA-Public Use
  Company Number: USA050597227

PATIENT
  Age: 8 Year
  Sex: Female

DRUGS (1)
  1. STRATTERA [Suspect]
     Dosage: 20 MG DAY
     Dates: start: 20050430, end: 20050430

REACTIONS (1)
  - EXTRAPYRAMIDAL DISORDER [None]
